FAERS Safety Report 7336600-9 (Version None)
Quarter: 2011Q1

REPORT INFORMATION
  Report Type: 
  Country: None (occurrence: None)
  Receive Date: 20110307
  Receipt Date: 20110222
  Transmission Date: 20110831
  Serious: Yes (Other)
  Sender: FDA-Public Use
  Company Number: US-BAYER-2010-005066

PATIENT
  Sex: Male
  Weight: 77 kg

DRUGS (5)
  1. MAGNEVIST [Suspect]
     Indication: ARTHROGRAM
     Dosage: MAGNEVIST DILUTED TO 1/200 IN SALINE
     Route: 014
     Dates: start: 20080827, end: 20080827
  2. SALINE [Suspect]
     Dosage: UNK
     Route: 014
     Dates: start: 20080827, end: 20080827
  3. MAGNEVIST [Suspect]
     Indication: MUSCULOSKELETAL PAIN
  4. MAGNEVIST [Suspect]
     Indication: PAIN IN EXTREMITY
  5. CONTRAST MEDIA [Suspect]
     Indication: ARTHROGRAM
     Dosage: UNK
     Route: 014
     Dates: start: 20080827, end: 20080827

REACTIONS (2)
  - JOINT INJURY [None]
  - PAIN [None]
